FAERS Safety Report 5411862-3 (Version None)
Quarter: 2007Q3

REPORT INFORMATION
  Report Type: 
  Country: None (occurrence: None)
  Receive Date: 20070813
  Receipt Date: 20070801
  Transmission Date: 20080115
  Serious: Yes (Other)
  Sender: FDA-Public Use
  Company Number: SG-ELI_LILLY_AND_COMPANY-SG200708001620

PATIENT
  Age: 45 Year
  Sex: Female

DRUGS (3)
  1. OLANZAPINE [Suspect]
     Indication: SCHIZOPHRENIA
     Dosage: 5 MG, UNK
     Dates: start: 20030301
  2. OLANZAPINE [Suspect]
     Dosage: 15 MG, UNK
     Dates: end: 20050101
  3. ZUCLOPENTHIXOL DECANOATE [Concomitant]
     Dosage: 400 MG, MONTHLY (1/M)

REACTIONS (1)
  - NEUTROPENIA [None]
